FAERS Safety Report 6326030-0 (Version None)
Quarter: 2009Q3

REPORT INFORMATION
  Report Type: 
  Country: None (occurrence: None)
  Receive Date: 20090818
  Receipt Date: 20090429
  Transmission Date: 20100115
  Serious: No
  Sender: FDA-Public Use
  Company Number: WAES 0904USA04553

PATIENT
  Age: 55 Year
  Sex: Female
  Weight: 102.9665 kg

DRUGS (7)
  1. JANUVIA [Suspect]
     Indication: DIABETES MELLITUS
     Dosage: 200 MG/DAILY/PO; 50 MG/DAILY/PO
     Route: 048
     Dates: start: 20090330, end: 20090410
  2. JANUVIA [Suspect]
     Indication: DIABETES MELLITUS
     Dosage: 200 MG/DAILY/PO; 50 MG/DAILY/PO
     Route: 048
     Dates: start: 20090503
  3. EFFEXOR [Concomitant]
  4. FOSAMAX PLUS D [Concomitant]
  5. FUROSEMIDE [Concomitant]
  6. METOPROLOL [Concomitant]
  7. OMEPRAZOLE [Concomitant]

REACTIONS (10)
  - ACCIDENTAL OVERDOSE [None]
  - ARRHYTHMIA [None]
  - BLOOD ALKALINE PHOSPHATASE INCREASED [None]
  - DECREASED APPETITE [None]
  - DISTURBANCE IN ATTENTION [None]
  - FEELING ABNORMAL [None]
  - HEADACHE [None]
  - MYALGIA [None]
  - RED BLOOD CELL SEDIMENTATION RATE INCREASED [None]
  - WEIGHT DECREASED [None]
